FAERS Safety Report 9012520 (Version 1)
Quarter: 2013Q1

REPORT INFORMATION
  Report Type: Spontaneous
  Country: US (occurrence: US)
  Receive Date: 20130114
  Receipt Date: 20130114
  Transmission Date: 20140127
  Serious: Yes (Other)
  Sender: FDA-Public Use
  Company Number: US-009507513-1007USA01040

PATIENT
  Sex: 0

DRUGS (3)
  1. FOSAMAX [Suspect]
     Indication: OSTEOPOROSIS
     Dosage: 70 MG, UNK
     Route: 048
     Dates: start: 20050113, end: 20080812
  2. FOSAMAX [Suspect]
     Dosage: 75 MG, QW
     Route: 048
     Dates: start: 20080610
  3. LIPITOR [Concomitant]
     Indication: BLOOD CHOLESTEROL INCREASED
     Dosage: 10 MG, QD
     Route: 048
     Dates: start: 1990

REACTIONS (26)
  - Osteonecrosis of jaw [Unknown]
  - Bone loss [Unknown]
  - Tooth disorder [Unknown]
  - Impaired healing [Unknown]
  - Transient ischaemic attack [Unknown]
  - Upper respiratory tract infection [Unknown]
  - Rosacea [Unknown]
  - Oedema peripheral [Recovered/Resolved]
  - Weight decreased [Unknown]
  - Decreased appetite [Unknown]
  - Memory impairment [Unknown]
  - Dyspepsia [Unknown]
  - Mastication disorder [Not Recovered/Not Resolved]
  - Dizziness [Recovered/Resolved]
  - Weight decreased [Unknown]
  - Vitamin B12 deficiency [Unknown]
  - Overdose [Unknown]
  - Temporomandibular joint syndrome [Unknown]
  - Gingival bleeding [Unknown]
  - Dental fistula [Not Recovered/Not Resolved]
  - Tooth loss [Unknown]
  - Early satiety [Unknown]
  - Skin lesion [Unknown]
  - Intestinal mass [Unknown]
  - Haemorrhoids [Unknown]
  - Gastrointestinal disorder [Unknown]
